FAERS Safety Report 25671245 (Version 1)
Quarter: 2025Q3

REPORT INFORMATION
  Report Type: Spontaneous
  Country: EU (occurrence: EU)
  Receive Date: 20250812
  Receipt Date: 20250812
  Transmission Date: 20251021
  Serious: Yes (Hospitalization, Other)
  Sender: BIOVITRUM
  Company Number: EU-BIOVITRUM-2025-FR-011030

PATIENT

DRUGS (1)
  1. KINERET [Suspect]
     Active Substance: ANAKINRA
     Indication: Product used for unknown indication

REACTIONS (8)
  - Rash vesicular [Recovered/Resolved]
  - Groin infection [Recovered/Resolved]
  - Goitre [Recovered/Resolved]
  - Fall [Recovered/Resolved]
  - Periorbital discomfort [Recovered/Resolved]
  - Vision blurred [Recovered/Resolved]
  - Optic atrophy [Recovered/Resolved]
  - Heterochromia iridis [Recovered/Resolved]

NARRATIVE: CASE EVENT DATE: 20210322
